FAERS Safety Report 20534774 (Version 1)
Quarter: 2022Q1

REPORT INFORMATION
  Report Type: Spontaneous
  Country: ES (occurrence: ES)
  Receive Date: 20220302
  Receipt Date: 20220302
  Transmission Date: 20220423
  Serious: Yes (Other)
  Sender: FDA-Public Use
  Company Number: ES-CELLTRION HEALTHCARE HUNGARY KFT-2021ES018930

PATIENT

DRUGS (2)
  1. REMICADE [Suspect]
     Active Substance: INFLIXIMAB
     Indication: Colitis ulcerative
     Dosage: 5 OR 10 MG/KG AT WEEKS 0, 2, AND 6
     Route: 042
  2. SULFAMETHOXAZOLE\TRIMETHOPRIM [Concomitant]
     Active Substance: SULFAMETHOXAZOLE\TRIMETHOPRIM
     Indication: Prophylaxis

REACTIONS (4)
  - Therapy partial responder [Unknown]
  - Off label use [Unknown]
  - Overdose [Unknown]
  - Drug ineffective [Unknown]
